FAERS Safety Report 6907070-7 (Version None)
Quarter: 2010Q3

REPORT INFORMATION
  Report Type: 
  Country: None (occurrence: None)
  Receive Date: 20100804
  Receipt Date: 20080709
  Transmission Date: 20110219
  Serious: No
  Sender: FDA-Public Use
  Company Number: US-PFIZER INC-2008040191

PATIENT
  Sex: Male

DRUGS (5)
  1. SELZENTRY [Suspect]
     Indication: HIV INFECTION
  2. ISENTRESS [Concomitant]
  3. DARUNAVIR [Concomitant]
  4. RITONAVIR [Concomitant]
  5. ALL OTHER THERAPEUTIC PRODUCTS [Concomitant]

REACTIONS (3)
  - DIARRHOEA [None]
  - FEELING ABNORMAL [None]
  - INCORRECT DOSE ADMINISTERED [None]
